FAERS Safety Report 19882143 (Version 1)
Quarter: 2021Q3

REPORT INFORMATION
  Report Type: Report from Study
  Country: DE (occurrence: DE)
  Receive Date: 20210924
  Receipt Date: 20210924
  Transmission Date: 20211014
  Serious: Yes (Hospitalization)
  Sender: FDA-Public Use
  Company Number: DE-PFIZER INC-202101258188

PATIENT
  Age: 73 Year
  Sex: Female
  Weight: 52 kg

DRUGS (17)
  1. ARA?C [Suspect]
     Active Substance: CYTARABINE
     Indication: ACUTE MYELOID LEUKAEMIA
     Dosage: 20 MG/M2
     Route: 058
     Dates: start: 20200608, end: 20210716
  2. DEKRISTOL [Concomitant]
     Active Substance: CHOLECALCIFEROL
     Dosage: UNK
     Dates: start: 20210315
  3. HYDROMORPHONE [Concomitant]
     Active Substance: HYDROMORPHONE
  4. LAVANID [Concomitant]
     Dosage: UNK
     Dates: start: 20201012
  5. MAGNESIUM [Concomitant]
     Active Substance: MAGNESIUM
     Dosage: UNK
     Dates: start: 20210406
  6. METAMIZOLE [Concomitant]
     Active Substance: METAMIZOLE
     Dosage: UNK
     Dates: start: 20200923
  7. BGB 324 [Suspect]
     Active Substance: BEMCENTINIB
     Dosage: 100 MG, 2X/DAY (200MG QD) MAINTENANCE DOSE
     Route: 048
     Dates: start: 20200611
  8. ESOMEPRAZOLE. [Concomitant]
     Active Substance: ESOMEPRAZOLE MAGNESIUM
     Dosage: UNK
     Dates: start: 20200814
  9. UNACID [SULTAMICILLIN TOSILATE] [Concomitant]
     Dosage: UNK
     Dates: start: 20011201
  10. AMLODIPINE [Concomitant]
     Active Substance: AMLODIPINE BESYLATE
     Dosage: UNK
     Dates: start: 20201125
  11. ONDANSETRON [Concomitant]
     Active Substance: ONDANSETRON
  12. XARELTO [Concomitant]
     Active Substance: RIVAROXABAN
     Dosage: UNK
     Dates: start: 20201208
  13. KALINOR [POTASSIUM CHLORIDE] [Concomitant]
     Active Substance: POTASSIUM CHLORIDE
     Dosage: UNK
     Dates: start: 20210406
  14. AMPHOTERICIN B. [Concomitant]
     Active Substance: AMPHOTERICIN B
  15. ACETYLDIGOXIN BETA [Concomitant]
  16. BGB 324 [Suspect]
     Active Substance: BEMCENTINIB
     Indication: ACUTE MYELOID LEUKAEMIA
     Dosage: 400 MG, DAILY (LOADING DOSE)
     Route: 048
     Dates: start: 20200608
  17. BISACODYL. [Concomitant]
     Active Substance: BISACODYL

REACTIONS (1)
  - Febrile neutropenia [Not Recovered/Not Resolved]

NARRATIVE: CASE EVENT DATE: 20210905
